FAERS Safety Report 4942690-0 (Version None)
Quarter: 2006Q1

REPORT INFORMATION
  Report Type: 
  Country: None (occurrence: None)
  Receive Date: 20060309
  Receipt Date: 20060224
  Transmission Date: 20060701
  Serious: Yes (Death)
  Sender: FDA-Public Use
  Company Number: GXKR2006IN01174

PATIENT
  Age: 53 Year
  Sex: Male

DRUGS (2)
  1. AZATHIOPRINE [Suspect]
     Indication: PEMPHIGUS
     Dosage: 100 MG, QD, INTRAVENOUS
     Route: 042
  2. DEXAMETHASONE [Suspect]
     Indication: PEMPHIGUS
     Dosage: 4 MG, Q8H, INTRAVENOUS
     Route: 042

REACTIONS (13)
  - BIOPSY SKIN ABNORMAL [None]
  - COMA [None]
  - CONDITION AGGRAVATED [None]
  - DIARRHOEA [None]
  - HEADACHE [None]
  - HYPOTENSION [None]
  - PEMPHIGUS [None]
  - PETECHIAE [None]
  - RESPIRATORY FAILURE [None]
  - SEPSIS [None]
  - SKIN HAEMORRHAGE [None]
  - STRONGYLOIDIASIS [None]
  - VOMITING [None]
